FAERS Safety Report 12706130 (Version 2)
Quarter: 2016Q3

REPORT INFORMATION
  Report Type: Spontaneous
  Country: US (occurrence: US)
  Receive Date: 20160901
  Receipt Date: 20160901
  Transmission Date: 20161109
  Serious: No
  Sender: FDA-Public Use
  Company Number: US-JAZZ-2016-US-008099

PATIENT
  Sex: Female

DRUGS (35)
  1. XYREM [Suspect]
     Active Substance: SODIUM OXYBATE
     Dosage: DOSE ADJUSTMENTS
     Route: 048
  2. CALCIUM + VITAMIN D [Concomitant]
     Active Substance: CALCIUM\VITAMIN D
  3. OXAZEPAM. [Concomitant]
     Active Substance: OXAZEPAM
  4. GABAPENTIN. [Concomitant]
     Active Substance: GABAPENTIN
  5. IBUPROFEN. [Concomitant]
     Active Substance: IBUPROFEN
  6. XYREM [Suspect]
     Active Substance: SODIUM OXYBATE
     Indication: FIBROMYALGIA
     Dosage: 4.5 G, BID
     Route: 048
     Dates: start: 201008, end: 201012
  7. OXCARBAZEPINE. [Concomitant]
     Active Substance: OXCARBAZEPINE
  8. DESIPRAMINE [Concomitant]
     Active Substance: DESIPRAMINE
  9. TRIAZOLAM. [Concomitant]
     Active Substance: TRIAZOLAM
  10. MULTAQ [Concomitant]
     Active Substance: DRONEDARONE
  11. GUAIFENESIN. [Concomitant]
     Active Substance: GUAIFENESIN
  12. CYMBALTA [Concomitant]
     Active Substance: DULOXETINE HYDROCHLORIDE
  13. VIAGRA [Concomitant]
     Active Substance: SILDENAFIL CITRATE
  14. LEVOTHYROXINE. [Concomitant]
     Active Substance: LEVOTHYROXINE
  15. TYLENOL [Concomitant]
     Active Substance: ACETAMINOPHEN
  16. PRAVASTATIN. [Suspect]
     Active Substance: PRAVASTATIN
     Indication: BLOOD CHOLESTEROL INCREASED
     Dosage: UNK
     Dates: end: 201602
  17. CINNAMON. [Concomitant]
     Active Substance: CINNAMON
  18. LOSARTAN POTASSIUM. [Concomitant]
     Active Substance: LOSARTAN POTASSIUM
  19. ZYPREXA [Concomitant]
     Active Substance: OLANZAPINE
  20. BRINTELLIX [Concomitant]
     Active Substance: VORTIOXETINE HYDROBROMIDE
  21. XYREM [Suspect]
     Active Substance: SODIUM OXYBATE
     Dosage: 6 G, BID
     Route: 048
     Dates: start: 201603
  22. BENICAR [Concomitant]
     Active Substance: OLMESARTAN MEDOXOMIL
  23. FUROSEMIDE. [Concomitant]
     Active Substance: FUROSEMIDE
  24. GARLIC. [Concomitant]
     Active Substance: GARLIC
  25. STRATTERA [Concomitant]
     Active Substance: ATOMOXETINE HYDROCHLORIDE
  26. LAMOTRIGINE. [Concomitant]
     Active Substance: LAMOTRIGINE
  27. CLARITIN [Concomitant]
     Active Substance: LORATADINE
  28. MULTIVITAMIN [Concomitant]
     Active Substance: VITAMINS
  29. HYDROCHLOROTHIAZIDE. [Concomitant]
     Active Substance: HYDROCHLOROTHIAZIDE
  30. VITAMIN B COMPLEX [Concomitant]
     Active Substance: CYANOCOBALAMIN\DEXPANTHENOL\NIACINAMIDE\PYRIDOXINE HYDROCHLORIDE\RIBOFLAVIN 5^-PHOSPHATE SODIUM\THIAMINE HYDROCHLORIDE\VITAMIN B COMPLEX
  31. COREG [Concomitant]
     Active Substance: CARVEDILOL
  32. DEPAKOTE ER [Concomitant]
     Active Substance: DIVALPROEX SODIUM
  33. LOSARTAN AND HYDROCHLOROTHIAZIDE [Concomitant]
     Active Substance: HYDROCHLOROTHIAZIDE\LOSARTAN POTASSIUM
  34. FLAXSEED [Concomitant]
     Active Substance: FLAX SEED
  35. PRILOSEC [Concomitant]
     Active Substance: OMEPRAZOLE MAGNESIUM

REACTIONS (1)
  - Pain in extremity [Unknown]
